FAERS Safety Report 14691972 (Version 2)
Quarter: 2018Q2

REPORT INFORMATION
  Report Type: Spontaneous
  Country: US (occurrence: US)
  Receive Date: 20180329
  Receipt Date: 20180422
  Transmission Date: 20180711
  Serious: Yes (Hospitalization, Other)
  Sender: FDA-Public Use
  Company Number: US-APOTEX-2018AP009164

PATIENT
  Age: 19 Year
  Sex: Male

DRUGS (2)
  1. ALPRAZOLAM. [Suspect]
     Active Substance: ALPRAZOLAM
     Indication: PRODUCT USED FOR UNKNOWN INDICATION
     Dosage: UNK
     Route: 065
  2. METHADONE [Suspect]
     Active Substance: METHADONE HYDROCHLORIDE
     Indication: PRODUCT USED FOR UNKNOWN INDICATION
     Dosage: UNK
     Route: 065

REACTIONS (11)
  - Unresponsive to stimuli [Unknown]
  - Pneumonia staphylococcal [Unknown]
  - Prescription drug used without a prescription [Unknown]
  - Drug screen positive [Unknown]
  - Miosis [Unknown]
  - Acute respiratory distress syndrome [Unknown]
  - Accidental overdose [Unknown]
  - Cyanosis [Unknown]
  - Respiratory failure [Unknown]
  - Septic shock [Unknown]
  - Drug abuse [Unknown]
